FAERS Safety Report 20485070 (Version 1)
Quarter: 2022Q1

REPORT INFORMATION
  Report Type: Spontaneous
  Country: US (occurrence: None)
  Receive Date: 20220216
  Receipt Date: 20220216
  Transmission Date: 20220424
  Serious: Yes (Death)
  Sender: FDA-Public Use
  Company Number: None

PATIENT
  Age: 67 Year
  Sex: Female

DRUGS (13)
  1. DOLUTEGRAVIR [Suspect]
     Active Substance: DOLUTEGRAVIR
     Indication: HIV infection
     Dosage: FREQUENCY : DAILY;?
     Route: 048
     Dates: start: 20211013
  2. COBICISTAT\DARUNAVIR ETHANOLATE [Suspect]
     Active Substance: COBICISTAT\DARUNAVIR ETHANOLATE
     Indication: HIV infection
     Dosage: OTHER QUANTITY : 800-150MG;?FREQUENCY : DAILY;?
     Route: 048
     Dates: start: 20211013
  3. WIXELA INHUB DISKUS 250/50MCG 60S [Concomitant]
  4. COMBIVENT RESPIMAT ORAL 120SPRAY 4G [Concomitant]
  5. ELIQUIS [Concomitant]
     Active Substance: APIXABAN
  6. OLANZAPINE 20MG TABLETS [Concomitant]
  7. MORPHINE SULF 1 00MG/5ML(20MG/ML)SOL [Concomitant]
  8. LORAZEPAM 2MG/ML DROPS 30ML [Concomitant]
  9. OXYCODONE [Concomitant]
     Active Substance: OXYCODONE
  10. XTAMPZA ER 18MG CAPSULES [Concomitant]
  11. CALCIUM 500+ D TABLETS 400^S [Concomitant]
  12. CO Q-10 100MG CAPSULES [Concomitant]
  13. VITAMIN A 8,000UNIT SOFTGELS [Concomitant]

REACTIONS (1)
  - Death [None]

NARRATIVE: CASE EVENT DATE: 20220129
